FAERS Safety Report 7737084-9 (Version None)
Quarter: 2011Q3

REPORT INFORMATION
  Report Type: 
  Country: None (occurrence: None)
  Receive Date: 20110908
  Receipt Date: 20110830
  Transmission Date: 20111222
  Serious: Yes (Hospitalization)
  Sender: FDA-Public Use
  Company Number: CA-JNJFOC-20110900705

PATIENT
  Sex: Female
  Weight: 62 kg

DRUGS (13)
  1. ST JOHN'S WORT [Concomitant]
     Route: 065
  2. PROMETRIUM [Concomitant]
     Route: 065
  3. VITAMIN D [Concomitant]
     Route: 065
  4. MAXERAN [Concomitant]
     Route: 065
  5. HYDROCHLOROTHIAZIDE [Concomitant]
     Route: 065
  6. FOLIC ACID [Concomitant]
     Route: 065
  7. REMICADE [Suspect]
     Indication: CROHN'S DISEASE
     Route: 042
     Dates: start: 20100101
  8. PANTOPRAZOLE SODIUM [Concomitant]
     Route: 065
  9. SILVER SULFADIAZINE [Concomitant]
     Route: 065
  10. METHOTREXATE [Concomitant]
     Route: 065
  11. CALCIUM CARBONATE [Concomitant]
     Route: 065
  12. NASAL CORTICOSTEROID [Concomitant]
     Route: 065
  13. MULTI-VITAMIN [Concomitant]
     Route: 065

REACTIONS (3)
  - PHLEBITIS [None]
  - ADHESION [None]
  - INTESTINAL OBSTRUCTION [None]
